FAERS Safety Report 4963295-1 (Version None)
Quarter: 2006Q2

REPORT INFORMATION
  Report Type: 
  Country: None (occurrence: None)
  Receive Date: 20060404
  Receipt Date: 20060404
  Transmission Date: 20061013
  Serious: Yes (Other)
  Sender: FDA-Public Use
  Company Number: None

PATIENT
  Sex: Female
  Weight: 24.4942 kg

DRUGS (1)
  1. FEXOFENADINE HCL [Suspect]
     Indication: MULTIPLE ALLERGIES
     Dosage: 30 MG    2 TIMES A DAY
     Dates: start: 20060104, end: 20060228

REACTIONS (6)
  - ABDOMINAL PAIN [None]
  - ANGINA PECTORIS [None]
  - BACK PAIN [None]
  - HEART RATE INCREASED [None]
  - PALPITATIONS [None]
  - PRURITUS [None]
